FAERS Safety Report 12691541 (Version 1)
Quarter: 2016Q3

REPORT INFORMATION
  Report Type: Spontaneous
  Country: JP (occurrence: JP)
  Receive Date: 20160826
  Receipt Date: 20160826
  Transmission Date: 20161109
  Serious: Yes (Other)
  Sender: FDA-Public Use
  Company Number: JP-LUNDBECK-DKLU2017932

PATIENT
  Age: 40 Year
  Sex: Male

DRUGS (8)
  1. HYDANTOL [Suspect]
     Active Substance: PHENYTOIN SODIUM
     Indication: EPILEPSY
     Route: 065
  2. MYSTAN [Suspect]
     Active Substance: CLOBAZAM
     Indication: EPILEPSY
     Route: 065
  3. VALERIN [Suspect]
     Active Substance: VALPROATE SODIUM
     Indication: EPILEPSY
     Route: 048
  4. DEPAKENE [Suspect]
     Active Substance: VALPROIC ACID
     Indication: EPILEPSY
     Route: 048
  5. EXCEMIDE [Suspect]
     Active Substance: ZONISAMIDE
     Indication: EPILEPSY
     Route: 048
  6. ALEVIATIN [Suspect]
     Active Substance: PHENYTOIN SODIUM
     Indication: EPILEPSY
     Route: 065
  7. DIAZEPAM. [Concomitant]
     Active Substance: DIAZEPAM
     Indication: PRODUCT USED FOR UNKNOWN INDICATION
     Route: 065
  8. MIDAZOLAM [Concomitant]
     Active Substance: MIDAZOLAM\MIDAZOLAM HYDROCHLORIDE
     Indication: PRODUCT USED FOR UNKNOWN INDICATION
     Route: 065

REACTIONS (11)
  - Status epilepticus [Recovering/Resolving]
  - Deficiency anaemia [Recovering/Resolving]
  - Blood erythropoietin increased [Recovering/Resolving]
  - Bundle branch block right [Recovering/Resolving]
  - Drug effect decreased [Recovering/Resolving]
  - Toxicity to various agents [Recovering/Resolving]
  - CD4 lymphocytes decreased [Recovering/Resolving]
  - Supraventricular extrasystoles [Recovering/Resolving]
  - Paradoxical drug reaction [Recovering/Resolving]
  - CD4 lymphocytes abnormal [Recovering/Resolving]
  - Iron deficiency anaemia [Recovering/Resolving]
